FAERS Safety Report 18675825 (Version 1)
Quarter: 2020Q4

REPORT INFORMATION
  Report Type: Spontaneous
  Country: US (occurrence: US)
  Receive Date: 20201228
  Receipt Date: 20201228
  Transmission Date: 20210114
  Serious: No
  Sender: FDA-Public Use
  Company Number: None

PATIENT
  Sex: Male

DRUGS (1)
  1. OTEZLA [Suspect]
     Active Substance: APREMILAST
     Indication: PSORIASIS
     Dosage: ?          OTHER DOSE:10/20/30;OTHER FREQUENCY:1-2 TIMES;?
     Route: 048
     Dates: start: 20201205

REACTIONS (4)
  - Drug ineffective [None]
  - Palpitations [None]
  - Anxiety [None]
  - Abdominal discomfort [None]
